FAERS Safety Report 8291145-7 (Version None)
Quarter: 2012Q2

REPORT INFORMATION
  Report Type: 
  Country: None (occurrence: None)
  Receive Date: 20120413
  Receipt Date: 20120411
  Transmission Date: 20120825
  Serious: Yes (Death)
  Sender: FDA-Public Use
  Company Number: ADR-2011-10936

PATIENT
  Age: 56 Year
  Sex: Male

DRUGS (1)
  1. LIORESAL [Suspect]
     Indication: MUSCLE SPASTICITY
     Dosage: 749.9  MCG,DAILY, INTRA
     Route: 037

REACTIONS (3)
  - CARDIAC FAILURE [None]
  - HYPERTENSION [None]
  - MULTIPLE SCLEROSIS [None]
